FAERS Safety Report 9540660 (Version 2)
Quarter: 2013Q3

REPORT INFORMATION
  Report Type: Spontaneous
  Country: GB (occurrence: GB)
  Receive Date: 20130920
  Receipt Date: 20130928
  Transmission Date: 20140515
  Serious: Yes (Other)
  Sender: FDA-Public Use
  Company Number: GB-009507513-1309GBR006614

PATIENT
  Sex: Female

DRUGS (6)
  1. IMPLANON [Suspect]
     Dosage: UNK
     Dates: start: 201001
  2. IBUPROFEN [Concomitant]
  3. LEVOTHYROXINE SODIUM [Concomitant]
  4. ACETAMINOPHEN [Concomitant]
  5. LANSOPRAZOLE [Concomitant]
  6. MIRTAZAPINE [Concomitant]

REACTIONS (8)
  - Cardiac arrest [Unknown]
  - Pulmonary embolism [Unknown]
  - Myelopathy [Unknown]
  - Hypokinesia [Unknown]
  - Hypothyroidism [Unknown]
  - Device deployment issue [Unknown]
  - Medical device complication [Unknown]
  - Incorrect drug administration duration [Unknown]
